FAERS Safety Report 5797533-2 (Version None)
Quarter: 2008Q2

REPORT INFORMATION
  Report Type: 
  Country: None (occurrence: None)
  Receive Date: 20080618
  Receipt Date: 20071008
  Transmission Date: 20081010
  Serious: Yes (Other)
  Sender: FDA-Public Use
  Company Number: 200717100US

PATIENT
  Age: 72 Year
  Sex: Male

DRUGS (8)
  1. LANTUS [Suspect]
     Indication: TYPE 2 DIABETES MELLITUS
     Dosage: 25 U HS
  2. AMARYL [Concomitant]
  3. AVANDIA [Concomitant]
  4. CLOPIDOGREL (PLAVIX /01220701/) [Concomitant]
  5. VALSARTAN (DIOVANE) [Concomitant]
  6. DIGOXIN [Concomitant]
  7. LOPRESSOR [Concomitant]
  8. THYROID MEDICATION NOS [Concomitant]

REACTIONS (3)
  - CONFUSIONAL STATE [None]
  - HYPOGLYCAEMIC UNCONSCIOUSNESS [None]
  - NERVOUSNESS [None]
